FAERS Safety Report 6161275-4 (Version None)
Quarter: 2009Q2

REPORT INFORMATION
  Report Type: 
  Country: None (occurrence: None)
  Receive Date: 20090417
  Receipt Date: 20090401
  Transmission Date: 20091009
  Serious: Yes (Other)
  Sender: FDA-Public Use
  Company Number: 21-703-2009-00001

PATIENT
  Age: 74 Year
  Sex: Male

DRUGS (3)
  1. PRISMASOL B22GK 2/0 [Suspect]
     Indication: FLUID REPLACEMENT
     Dosage: HEMODIALYSIS; INTRAVENOUS
     Route: 042
  2. PRISMA SN: 962281 [Concomitant]
  3. PRISMA M-100 FILTER [Concomitant]

REACTIONS (2)
  - DEVICE MISUSE [None]
  - MEDICAL DEVICE COMPLICATION [None]
